FAERS Safety Report 21925073 (Version 1)
Quarter: 2023Q1

REPORT INFORMATION
  Report Type: Spontaneous
  Country: NL (occurrence: NL)
  Receive Date: 20230130
  Receipt Date: 20230130
  Transmission Date: 20230418
  Serious: Yes (Other)
  Sender: FDA-Public Use
  Company Number: None

PATIENT
  Sex: Male
  Weight: 85 kg

DRUGS (3)
  1. ATORVASTATIN [Suspect]
     Active Substance: ATORVASTATIN
     Indication: Hypercholesterolaemia
     Dosage: STRENGTH: 40 MG, 1X PER DAY 1 PIECE
     Dates: start: 20220519
  2. ISOSORBIDE MONONITRATE [Suspect]
     Active Substance: ISOSORBIDE MONONITRATE
     Indication: Angina pectoris
     Dosage: STRENGTH:30 MG, 1X PER DAY 1 PIECE
     Dates: start: 20220707
  3. ASPIRIN [Suspect]
     Active Substance: ASPIRIN
     Indication: Prophylaxis
     Dosage: STRENGTH:80 MG, 1X PER DAY 1 PIECE
     Dates: start: 20220519

REACTIONS (2)
  - Tendon rupture [Recovering/Resolving]
  - Muscle rupture [Unknown]
